FAERS Safety Report 8327077-5 (Version None)
Quarter: 2012Q2

REPORT INFORMATION
  Report Type: 
  Country: None (occurrence: None)
  Receive Date: 20120501
  Receipt Date: 20120201
  Transmission Date: 20120825
  Serious: No
  Sender: FDA-Public Use
  Company Number: US-SANOFI-AVENTIS-2012SA006967

PATIENT
  Age: 41 Year
  Sex: Female

DRUGS (5)
  1. APIDRA [Suspect]
     Dosage: SLIDING SCALE
     Route: 058
  2. SOLOSTAR [Suspect]
     Dates: start: 20060101
  3. LANTUS [Suspect]
     Dosage: DOSE:12 UNIT(S)
     Route: 058
     Dates: start: 20060101
  4. CORTISONE ACETATE [Suspect]
     Route: 065
  5. SOLOSTAR [Suspect]

REACTIONS (2)
  - BLOOD GLUCOSE INCREASED [None]
  - NERVOUSNESS [None]
